FAERS Safety Report 22207824 (Version 1)
Quarter: 2023Q2

REPORT INFORMATION
  Report Type: Spontaneous
  Country: CN (occurrence: CN)
  Receive Date: 20230413
  Receipt Date: 20230413
  Transmission Date: 20230721
  Serious: Yes (Hospitalization, Other)
  Sender: FDA-Public Use
  Company Number: CN-ABBVIE-4725984

PATIENT
  Age: 56 Year
  Sex: Female
  Weight: 48 kg

DRUGS (5)
  1. VENCLEXTA [Suspect]
     Active Substance: VENETOCLAX
     Indication: Acute myeloid leukaemia
     Dosage: 100 MILLIGRAM
     Route: 048
     Dates: start: 20230217, end: 20230223
  2. OPRELVEKIN [Concomitant]
     Active Substance: OPRELVEKIN
     Indication: Product used for unknown indication
     Dosage: 1.5 MG, IH, QD
     Dates: start: 20230305, end: 20230310
  3. GRANULOCYTE COLONY-STIMULATING FACTOR NOS [Concomitant]
     Active Substance: GRANULOCYTE COLONY-STIMULATING FACTOR NOS
     Indication: Product used for unknown indication
     Dates: start: 20230304, end: 20230310
  4. AZACITIDINE [Suspect]
     Active Substance: AZACITIDINE
     Indication: Acute myeloid leukaemia
     Dosage: 100 MILLIGRAM
     Route: 058
     Dates: start: 20230217, end: 20230223
  5. STERILE WATER FOR INJECTION [Concomitant]
     Active Substance: WATER
     Indication: Menstrual disorder
     Dosage: 4 ML, STERILE WATER FOR INJECTION
     Route: 058
     Dates: start: 20230217, end: 20230223

REACTIONS (1)
  - Pancytopenia [Recovering/Resolving]

NARRATIVE: CASE EVENT DATE: 20230304
